FAERS Safety Report 14200894 (Version 1)
Quarter: 2017Q4

REPORT INFORMATION
  Report Type: Spontaneous
  Country: DE (occurrence: DE)
  Receive Date: 20171117
  Receipt Date: 20171117
  Transmission Date: 20180321
  Serious: Yes (Hospitalization, Other)
  Sender: FDA-Public Use
  Company Number: DE-BAUSCH-BL-2017-031518

PATIENT
  Age: 17 Year
  Sex: Male
  Weight: 75 kg

DRUGS (2)
  1. ACNATAC 10 MG/G+0,25 MG/G GEL [Suspect]
     Active Substance: CLINDAMYCIN PHOSPHATE\TRETINOIN
     Dosage: 10MG/G-0.25 MG/G
     Route: 061
     Dates: start: 2017
  2. ACNATAC 10 MG/G+0,25 MG/G GEL [Suspect]
     Active Substance: CLINDAMYCIN PHOSPHATE\TRETINOIN
     Indication: ACNE
     Dosage: 10MG/G-0.25 MG/G
     Route: 061
     Dates: start: 20170227, end: 20170301

REACTIONS (6)
  - Headache [Recovered/Resolved]
  - Hospitalisation [Recovered/Resolved]
  - Abdominal pain [Recovered/Resolved]
  - Dizziness [Recovered/Resolved]
  - Nausea [Recovered/Resolved]
  - Pyrexia [Recovered/Resolved]

NARRATIVE: CASE EVENT DATE: 20170228
